FAERS Safety Report 4672798-9 (Version None)
Quarter: 2005Q2

REPORT INFORMATION
  Report Type: 
  Country: None (occurrence: None)
  Receive Date: 20050523
  Receipt Date: 20050509
  Transmission Date: 20051028
  Serious: Yes (Hospitalization, Other)
  Sender: FDA-Public Use
  Company Number: SEWYE491709MAR05

PATIENT
  Age: 64 Year
  Sex: Male

DRUGS (1)
  1. CYCLOSPORINE [Suspect]
     Dosage: 5 MG 1X PER 1 DAY
     Dates: start: 20050208

REACTIONS (9)
  - ANAEMIA [None]
  - BLOOD CHOLESTEROL INCREASED [None]
  - COMPLICATIONS OF TRANSPLANTED KIDNEY [None]
  - GRAFT DYSFUNCTION [None]
  - HYDRONEPHROSIS [None]
  - ILIAC VEIN OCCLUSION [None]
  - LOW DENSITY LIPOPROTEIN INCREASED [None]
  - LYMPHOCELE [None]
  - OEDEMA PERIPHERAL [None]
